FAERS Safety Report 7269389-2 (Version None)
Quarter: 2011Q1

REPORT INFORMATION
  Report Type: 
  Country: None (occurrence: None)
  Receive Date: 20110202
  Receipt Date: 20110124
  Transmission Date: 20110831
  Serious: Yes (Hospitalization)
  Sender: FDA-Public Use
  Company Number: FR-BRISTOL-MYERS SQUIBB COMPANY-15511025

PATIENT
  Age: 33 Year
  Sex: Male

DRUGS (1)
  1. COUMADIN [Suspect]
     Route: 048
     Dates: start: 20100811, end: 20100827

REACTIONS (4)
  - ABDOMINAL PAIN [None]
  - SHOCK HAEMORRHAGIC [None]
  - ANAEMIA [None]
  - STAPHYLOCOCCAL INFECTION [None]
